FAERS Safety Report 17312312 (Version 1)
Quarter: 2020Q1

REPORT INFORMATION
  Report Type: Spontaneous
  Country: US (occurrence: US)
  Receive Date: 20200123
  Receipt Date: 20200123
  Transmission Date: 20200409
  Serious: Yes (Hospitalization)
  Sender: FDA-Public Use
  Company Number: US-NOVOPROD-670891

PATIENT
  Age: 29 Year
  Sex: Female

DRUGS (3)
  1. OZEMPIC [Suspect]
     Active Substance: SEMAGLUTIDE
     Indication: OBESITY
     Dosage: UNK
     Route: 058
     Dates: end: 201906
  2. OZEMPIC [Suspect]
     Active Substance: SEMAGLUTIDE
     Indication: WEIGHT DECREASED
  3. OZEMPIC [Suspect]
     Active Substance: SEMAGLUTIDE
     Indication: POLYCYSTIC OVARIES

REACTIONS (3)
  - Pancreatitis [Unknown]
  - Impaired gastric emptying [Unknown]
  - Off label use [Recovered/Resolved]

NARRATIVE: CASE EVENT DATE: 201906
